FAERS Safety Report 9641854 (Version 1)
Quarter: 2013Q4

REPORT INFORMATION
  Report Type: Spontaneous
  Country: US (occurrence: US)
  Receive Date: 20131023
  Receipt Date: 20131023
  Transmission Date: 20140711
  Serious: No
  Sender: FDA-Public Use
  Company Number: US-009507513-1310USA007231

PATIENT
  Sex: Male

DRUGS (6)
  1. ASMANEX TWISTHALER [Suspect]
     Indication: EMPHYSEMA
     Dosage: ONE PUFF, ONCE DAILY
     Route: 055
     Dates: start: 2011
  2. ASMANEX TWISTHALER [Suspect]
     Dosage: TWO PUFF, TWICE DAILY
     Route: 055
  3. ASMANEX TWISTHALER [Suspect]
     Dosage: ONE PUFF, TWICE DAILY
     Route: 055
  4. ASMANEX TWISTHALER [Suspect]
     Dosage: ONE PUFF, ONCE DAILY
     Route: 055
  5. ASMANEX TWISTHALER [Suspect]
     Dosage: UNK
  6. SPIRIVA RESPIMAT [Concomitant]

REACTIONS (2)
  - Dysphonia [Not Recovered/Not Resolved]
  - Dysphonia [Unknown]
